FAERS Safety Report 4414718-8 (Version None)
Quarter: 2004Q3

REPORT INFORMATION
  Report Type: 
  Country: None (occurrence: None)
  Receive Date: 20040804
  Receipt Date: 20030717
  Transmission Date: 20050211
  Serious: No
  Sender: FDA-Public Use
  Company Number: US-BRISTOL-MYERS SQUIBB COMPANY-12328837

PATIENT
  Age: 48 Week
  Sex: Male
  Weight: 77 kg

DRUGS (1)
  1. GLUCOVANCE [Suspect]
     Indication: BLOOD GLUCOSE INCREASED
     Route: 048
     Dates: start: 20030716

REACTIONS (3)
  - DIZZINESS [None]
  - HYPERHIDROSIS [None]
  - TREMOR [None]
